FAERS Safety Report 11158749 (Version 2)
Quarter: 2015Q3

REPORT INFORMATION
  Report Type: Spontaneous
  Country: US (occurrence: US)
  Receive Date: 20150603
  Receipt Date: 20150820
  Transmission Date: 20151125
  Serious: No
  Sender: FDA-Public Use
  Company Number: US-PFIZER INC-2015184509

PATIENT
  Age: 71 Year
  Sex: Female
  Weight: 75 kg

DRUGS (4)
  1. IBUPROFEN. [Concomitant]
     Active Substance: IBUPROFEN
     Dosage: 600 MG, AS NEEDED
  2. LYRICA [Concomitant]
     Active Substance: PREGABALIN
     Dosage: 100 MG, (1-2DAY)
  3. CELEBREX [Suspect]
     Active Substance: CELECOXIB
     Indication: FIBROMYALGIA
     Dosage: 1 DF, DAILY
     Route: 048
  4. MELOXICAM. [Suspect]
     Active Substance: MELOXICAM
     Indication: FIBROMYALGIA
     Dosage: 15 MG, 1X/DAY
     Route: 048
     Dates: start: 20120608

REACTIONS (1)
  - Drug ineffective [Not Recovered/Not Resolved]

NARRATIVE: CASE EVENT DATE: 20120608
